FAERS Safety Report 6866879-9 (Version None)
Quarter: 2010Q3

REPORT INFORMATION
  Report Type: 
  Country: None (occurrence: None)
  Receive Date: 20100722
  Receipt Date: 20100722
  Transmission Date: 20110219
  Serious: Yes (Disabling)
  Sender: FDA-Public Use
  Company Number: None

PATIENT
  Age: 73 Year
  Sex: Male
  Weight: 92.9874 kg

DRUGS (9)
  1. CRESTOR [Suspect]
     Indication: BLOOD CHOLESTEROL
     Dosage: 5 MG/DAY 1/DAY BY MOUTH
     Route: 048
     Dates: start: 20100330, end: 20100603
  2. AMLODIPINE [Concomitant]
  3. DIOVAN [Concomitant]
  4. METOPROLOL TARTRATE [Concomitant]
  5. PLAVIX [Concomitant]
  6. ALLOPURINOL [Concomitant]
  7. TERAZOSIN HCL [Concomitant]
  8. KLOR-CON M10 [Concomitant]
  9. LOVAZA [Concomitant]

REACTIONS (4)
  - AMNESIA [None]
  - HEART RATE IRREGULAR [None]
  - MYALGIA [None]
  - THINKING ABNORMAL [None]
